FAERS Safety Report 14605781 (Version 2)
Quarter: 2018Q3

REPORT INFORMATION
  Report Type: Report from Study
  Country: JP (occurrence: JP)
  Receive Date: 20180306
  Receipt Date: 20180711
  Transmission Date: 20181010
  Serious: Yes (Death, Other)
  Sender: FDA-Public Use
  Company Number: JP-AMGEN-JPNNI2018031231

PATIENT
  Age: 76 Year
  Sex: Male

DRUGS (16)
  1. CARFILZOMIB [Suspect]
     Active Substance: CARFILZOMIB
     Dosage: 56 MG/M2, UNK
     Route: 041
     Dates: start: 20170809, end: 20170810
  2. LENADEX [Concomitant]
     Active Substance: DEXAMETHASONE ACETATE
     Dosage: 20 MG, UNK
     Dates: start: 20170719
  3. CARFILZOMIB [Suspect]
     Active Substance: CARFILZOMIB
     Dosage: 56 MG/M2, UNK
     Route: 041
     Dates: start: 20170719, end: 20170720
  4. CARFILZOMIB [Suspect]
     Active Substance: CARFILZOMIB
     Dosage: 56 MG/M2, UNK
     Route: 041
     Dates: start: 20170726, end: 20170727
  5. LENADEX [Concomitant]
     Active Substance: DEXAMETHASONE ACETATE
     Dosage: 20 MG, UNK
     Dates: start: 20170809
  6. ACICLOVIR [Concomitant]
     Active Substance: ACYCLOVIR
     Dosage: UNK
     Dates: end: 201708
  7. LENADEX [Concomitant]
     Active Substance: DEXAMETHASONE ACETATE
     Dosage: 20 MG, UNK
     Dates: start: 20170712
  8. LENADEX [Concomitant]
     Active Substance: DEXAMETHASONE ACETATE
     Dosage: 4 MG, UNK
     Dates: start: 20170720
  9. CARFILZOMIB [Suspect]
     Active Substance: CARFILZOMIB
     Indication: PLASMA CELL MYELOMA
     Dosage: 20 MG/M2, UNK
     Route: 041
     Dates: start: 20170712, end: 20170713
  10. CARFILZOMIB [Suspect]
     Active Substance: CARFILZOMIB
     Dosage: 56 MG/M2, UNK
     Route: 041
     Dates: start: 20170817, end: 20170818
  11. LENADEX [Concomitant]
     Active Substance: DEXAMETHASONE ACETATE
     Dosage: 4 MG, UNK
     Dates: start: 20170713
  12. LENADEX [Concomitant]
     Active Substance: DEXAMETHASONE ACETATE
     Dosage: 4 MG, UNK
     Dates: start: 20170727
  13. LENADEX [Concomitant]
     Active Substance: DEXAMETHASONE ACETATE
     Dosage: 20 MG, UNK
     Dates: start: 20170726
  14. LENADEX [Concomitant]
     Active Substance: DEXAMETHASONE ACETATE
     Dosage: 4 MG, UNK
     Dates: start: 20170810
  15. LENADEX [Concomitant]
     Active Substance: DEXAMETHASONE ACETATE
     Dosage: 20 MG, UNK
     Dates: start: 20170817
  16. LENADEX [Concomitant]
     Active Substance: DEXAMETHASONE ACETATE
     Dosage: 4 MG, UNK
     Dates: start: 20170818

REACTIONS (2)
  - Death [Fatal]
  - Oedema [Unknown]

NARRATIVE: CASE EVENT DATE: 201708
